FAERS Safety Report 13239296 (Version 1)
Quarter: 2017Q1

REPORT INFORMATION
  Report Type: Spontaneous
  Country: US (occurrence: US)
  Receive Date: 20170216
  Receipt Date: 20170216
  Transmission Date: 20170428
  Serious: No
  Sender: FDA-Public Use
  Company Number: US-009507513-1701USA014182

PATIENT
  Age: 62 Year
  Sex: Male

DRUGS (3)
  1. ZOCOR [Suspect]
     Active Substance: SIMVASTATIN
     Indication: HYPERCHOLESTEROLAEMIA
     Dosage: UNK
     Route: 048
  2. NIACIN. [Concomitant]
     Active Substance: NIACIN
     Dosage: UNK
  3. ZETIA [Suspect]
     Active Substance: EZETIMIBE
     Indication: HYPERCHOLESTEROLAEMIA
     Dosage: UNK
     Route: 048
     Dates: start: 201501

REACTIONS (4)
  - Arthralgia [Unknown]
  - Tenosynovitis [Not Recovered/Not Resolved]
  - Bursitis [Unknown]
  - Pain [Unknown]

NARRATIVE: CASE EVENT DATE: 201601
